FAERS Safety Report 4569686-5 (Version None)
Quarter: 2005Q1

REPORT INFORMATION
  Report Type: 
  Country: None (occurrence: None)
  Receive Date: 20050201
  Receipt Date: 20050119
  Transmission Date: 20050727
  Serious: Yes (Hospitalization)
  Sender: FDA-Public Use
  Company Number: 6012659

PATIENT
  Age: 72 Year
  Sex: Female

DRUGS (2)
  1. LEVOTHYROXINE SODIUM [Suspect]
     Indication: HYPOTHYROIDISM
     Dosage: ORAL
     Route: 048
  2. GLIVEC (TABLETS) (IMATINIB MESILATE) [Suspect]
     Indication: CHRONIC MYELOID LEUKAEMIA
     Dosage: 1 IN 1 D ORAL
     Route: 048
     Dates: start: 20010402

REACTIONS (1)
  - THROMBOCYTOPENIA [None]
